FAERS Safety Report 7410641-5 (Version None)
Quarter: 2011Q2

REPORT INFORMATION
  Report Type: 
  Country: None (occurrence: None)
  Receive Date: 20110413
  Receipt Date: 20110314
  Transmission Date: 20111010
  Serious: No
  Sender: FDA-Public Use
  Company Number: US-BAYER-2011-023908

PATIENT
  Sex: Female
  Weight: 54.422 kg

DRUGS (2)
  1. YAZ [Suspect]
     Indication: CONTRACEPTION
     Dosage: UNK
     Dates: start: 20110204, end: 20110222
  2. KLONOPIN [Concomitant]

REACTIONS (3)
  - MUSCLE SPASMS [None]
  - ABDOMINAL DISTENSION [None]
  - MENORRHAGIA [None]
